FAERS Safety Report 21034716 (Version 1)
Quarter: 2022Q3

REPORT INFORMATION
  Report Type: Spontaneous
  Country: US (occurrence: US)
  Receive Date: 20220701
  Receipt Date: 20220701
  Transmission Date: 20221026
  Serious: Yes (Hospitalization, Other)
  Sender: FDA-Public Use
  Company Number: US-BRISTOL-MYERS SQUIBB COMPANY-2022-063958

PATIENT
  Age: 56 Year
  Sex: Male
  Weight: 58 kg

DRUGS (4)
  1. ELIQUIS [Suspect]
     Active Substance: APIXABAN
     Indication: Cerebrovascular accident prophylaxis
     Route: 048
     Dates: start: 202106
  2. ELIQUIS [Suspect]
     Active Substance: APIXABAN
     Route: 048
  3. ELIQUIS [Suspect]
     Active Substance: APIXABAN
     Route: 048
  4. DIGOXIN [Concomitant]
     Active Substance: DIGOXIN
     Indication: Product used for unknown indication
     Route: 065

REACTIONS (3)
  - Tooth abscess [Unknown]
  - Pancreatic mass [Unknown]
  - Gastric haemorrhage [Unknown]

NARRATIVE: CASE EVENT DATE: 20211101
